FAERS Safety Report 19294631 (Version 1)
Quarter: 2021Q2

REPORT INFORMATION
  Report Type: Spontaneous
  Country: FR (occurrence: FR)
  Receive Date: 20210524
  Receipt Date: 20210524
  Transmission Date: 20210717
  Serious: Yes (Other)
  Sender: FDA-Public Use
  Company Number: FR-ACCORD-225747

PATIENT
  Age: 82 Year
  Sex: Female
  Weight: 52 kg

DRUGS (8)
  1. DOLIPRANE [Concomitant]
     Active Substance: ACETAMINOPHEN
  2. OROCAL [Concomitant]
  3. LETROZOLE. [Suspect]
     Active Substance: LETROZOLE
     Indication: BREAST CANCER
     Route: 048
     Dates: start: 20200911
  4. IBRANCE [Suspect]
     Active Substance: PALBOCICLIB
     Indication: BREAST CANCER
     Route: 048
     Dates: start: 20200911
  5. COMIRNATY [Suspect]
     Active Substance: TOZINAMERAN
     Indication: COVID-19 IMMUNISATION
     Route: 030
     Dates: start: 202102
  6. LEVOTHYROX [Concomitant]
     Active Substance: LEVOTHYROXINE
  7. PIASCLEDINE [Concomitant]
     Active Substance: AVOCADO OIL\SOYBEAN OIL
  8. TWYNSTA [Concomitant]
     Active Substance: AMLODIPINE BESYLATE\TELMISARTAN

REACTIONS (2)
  - Interstitial lung disease [Not Recovered/Not Resolved]
  - Venous thrombosis [Recovering/Resolving]

NARRATIVE: CASE EVENT DATE: 202102
